FAERS Safety Report 9302080 (Version 1)
Quarter: 2013Q2

REPORT INFORMATION
  Report Type: Spontaneous
  Country: ES (occurrence: ES)
  Receive Date: 20130521
  Receipt Date: 20130521
  Transmission Date: 20140414
  Serious: Yes (Life-Threatening, Hospitalization, Disabling)
  Sender: FDA-Public Use
  Company Number: ES-B.I. PHARMACEUTICALS,INC./RIDGEFIELD-2013-ES-00245ES

PATIENT
  Age: 80 Year
  Sex: Female

DRUGS (2)
  1. PRADAXA [Suspect]
     Indication: ATRIAL FIBRILLATION
     Dosage: 220 MG
     Route: 048
     Dates: start: 20130209, end: 20130210
  2. DIGOXINA [Concomitant]
     Indication: ATRIAL FIBRILLATION

REACTIONS (2)
  - Intracardiac thrombus [Not Recovered/Not Resolved]
  - Embolism [Recovered/Resolved with Sequelae]
